FAERS Safety Report 6627930-4 (Version None)
Quarter: 2010Q1

REPORT INFORMATION
  Report Type: 
  Country: None (occurrence: None)
  Receive Date: 20100311
  Receipt Date: 20090402
  Transmission Date: 20100710
  Serious: No
  Sender: FDA-Public Use
  Company Number: A0776760A

PATIENT
  Age: 29 Year
  Sex: Female

DRUGS (1)
  1. NICORETTE (MINT) [Suspect]
     Dates: start: 20090330

REACTIONS (1)
  - NICOTINE DEPENDENCE [None]
